FAERS Safety Report 11930232 (Version 4)
Quarter: 2017Q1

REPORT INFORMATION
  Report Type: Spontaneous
  Country: JP (occurrence: JP)
  Receive Date: 20160120
  Receipt Date: 20170328
  Transmission Date: 20170428
  Serious: Yes (Death, Hospitalization, Other)
  Sender: FDA-Public Use
  Company Number: JP-PFIZER INC-2016007660

PATIENT
  Age: 60 Year
  Sex: Male
  Weight: 60 kg

DRUGS (9)
  1. SAMSCA [Concomitant]
     Active Substance: TOLVAPTAN
     Indication: DIURETIC THERAPY
     Dosage: 7.5 MG, 1X/DAY
     Route: 048
     Dates: start: 20161005, end: 20161102
  2. LIVACT /00847901/ [Concomitant]
     Active Substance: ISOLEUCINE\LEUCINE\VALINE
     Indication: HEPATIC CIRRHOSIS
     Dosage: 4.15 G, 3X/DAY
     Route: 048
     Dates: start: 20150727, end: 20161102
  3. URSO [Concomitant]
     Active Substance: URSODIOL
     Indication: LIVER DISORDER
     Dosage: 200 MG, 3X/DAY
     Route: 048
     Dates: start: 20150727, end: 20161102
  4. TRANSAMIN [Concomitant]
     Active Substance: TRANEXAMIC ACID
     Indication: MOUTH HAEMORRHAGE
     Dosage: 250 MG, 3X/DAY
     Route: 048
     Dates: start: 20150727, end: 20161102
  5. BENEFIX [Suspect]
     Active Substance: COAGULATION FACTOR IX RECOMBINANT HUMAN\ISOPROPYL ALCOHOL
     Dosage: 2000 IU, ALTERNATE DAY
     Route: 042
     Dates: start: 20150727, end: 20161102
  6. LIVACT /00847901/ [Concomitant]
     Active Substance: ISOLEUCINE\LEUCINE\VALINE
     Indication: HEPATIC FAILURE
  7. HICEE /00008001/ [Concomitant]
     Indication: MOUTH HAEMORRHAGE
     Dosage: 1 G, 3X/DAY
     Route: 048
     Dates: start: 20150727, end: 20161102
  8. BENEFIX [Suspect]
     Active Substance: COAGULATION FACTOR IX RECOMBINANT HUMAN\ISOPROPYL ALCOHOL
     Indication: FACTOR IX DEFICIENCY
     Dosage: 1000 IU, DAILY
     Route: 042
  9. AMINOLEBAN EN [Concomitant]
     Active Substance: UNSPECIFIED INGREDIENT
     Indication: HEPATIC ENCEPHALOPATHY
     Dosage: 50 G, 3X/DAY
     Dates: start: 20150727, end: 20161102

REACTIONS (6)
  - Hepatic failure [Fatal]
  - Gastric polyps [Not Recovered/Not Resolved]
  - Coma hepatic [Unknown]
  - Hepatic cirrhosis [Fatal]
  - Haemorrhage [Recovered/Resolved]
  - Disease progression [Fatal]

NARRATIVE: CASE EVENT DATE: 20151202
